FAERS Safety Report 19470041 (Version 1)
Quarter: 2021Q2

REPORT INFORMATION
  Report Type: Spontaneous
  Country: US (occurrence: US)
  Receive Date: 20210629
  Receipt Date: 20210629
  Transmission Date: 20210717
  Serious: No
  Sender: FDA-Public Use
  Company Number: US-TARO-2021TAR00054

PATIENT

DRUGS (1)
  1. NORTRIPTYLINE HCL CAPSULES 50 MG [Suspect]
     Active Substance: NORTRIPTYLINE HYDROCHLORIDE
     Indication: PRODUCT USED FOR UNKNOWN INDICATION
     Dosage: 100 MILLIGRAM, TAKES TWO A NIGHT
     Route: 048
     Dates: start: 20201205

REACTIONS (2)
  - Product taste abnormal [Not Recovered/Not Resolved]
  - Hot flush [Unknown]

NARRATIVE: CASE EVENT DATE: 20201205
